FAERS Safety Report 9321377 (Version 3)
Quarter: 2013Q3

REPORT INFORMATION
  Report Type: Spontaneous
  Country: PL (occurrence: PL)
  Receive Date: 20130531
  Receipt Date: 20130724
  Transmission Date: 20140515
  Serious: Yes (Hospitalization, Other)
  Sender: FDA-Public Use
  Company Number: PL-AMGEN-POLSP2013038191

PATIENT
  Sex: Male

DRUGS (1)
  1. VECTIBIX [Suspect]
     Indication: PRODUCT USED FOR UNKNOWN INDICATION
     Dosage: UNK
     Route: 065

REACTIONS (6)
  - Peripheral ischaemia [Unknown]
  - Arteriosclerosis [Unknown]
  - Necrosis [Unknown]
  - Local swelling [Unknown]
  - Contusion [Unknown]
  - Incorrect route of drug administration [Unknown]
